FAERS Safety Report 22019742 (Version 1)
Quarter: 2023Q1

REPORT INFORMATION
  Report Type: Spontaneous
  Country: US (occurrence: US)
  Receive Date: 20230222
  Receipt Date: 20230222
  Transmission Date: 20230417
  Serious: No
  Sender: FDA-Public Use
  Company Number: US-CSLP-50601023730-V12871273-3

PATIENT
  Age: 49 Year
  Sex: Female

DRUGS (1)
  1. ANTICOAGULANT SODIUM CITRATE [Suspect]
     Active Substance: SODIUM CITRATE
     Indication: Anticoagulant therapy
     Route: 050
     Dates: start: 20230202, end: 20230202

REACTIONS (8)
  - Asthenia [Unknown]
  - Vomiting [Unknown]
  - Pain [Unknown]
  - Nausea [Unknown]
  - Tetany [Unknown]
  - Vessel puncture site haematoma [Unknown]
  - Pallor [Unknown]
  - Hypotension [Unknown]

NARRATIVE: CASE EVENT DATE: 20230202
